FAERS Safety Report 10907860 (Version 1)
Quarter: 2015Q1

REPORT INFORMATION
  Report Type: Report from Study
  Country: CA (occurrence: CA)
  Receive Date: 20150312
  Receipt Date: 20150312
  Transmission Date: 20150721
  Serious: Yes (Hospitalization)
  Sender: FDA-Public Use
  Company Number: CA-ELI_LILLY_AND_COMPANY-CA201501007577

PATIENT
  Age: 55 Year
  Sex: Male
  Weight: 61 kg

DRUGS (5)
  1. DIABETA                            /00145301/ [Concomitant]
     Dosage: UNK, UNKNOWN
     Route: 065
  2. RAMUCIRUMAB [Suspect]
     Active Substance: RAMUCIRUMAB
     Indication: GASTRIC CANCER STAGE IV
     Dosage: 490 MG, WEEKLY FOR 3 WEEKS AND 1 WEEK OFF
     Route: 042
     Dates: start: 20150109, end: 20150109
  3. PACLITAXEL. [Concomitant]
     Active Substance: PACLITAXEL
     Indication: GASTRIC CANCER STAGE IV
     Dosage: UNK UNK, UNKNOWN
     Route: 065
     Dates: start: 20150109
  4. LIPITOR [Concomitant]
     Active Substance: ATORVASTATIN CALCIUM
     Dosage: UNK, UNKNOWN
     Route: 065
  5. DOMPERIDONE [Concomitant]
     Active Substance: DOMPERIDONE
     Dosage: UNK, UNKNOWN
     Route: 065

REACTIONS (2)
  - Peripheral ischaemia [Recovering/Resolving]
  - Peripheral embolism [Recovering/Resolving]

NARRATIVE: CASE EVENT DATE: 20150115
